FAERS Safety Report 6823847-0 (Version None)
Quarter: 2010Q3

REPORT INFORMATION
  Report Type: 
  Country: None (occurrence: None)
  Receive Date: 20100708
  Receipt Date: 20060915
  Transmission Date: 20110219
  Serious: No
  Sender: FDA-Public Use
  Company Number: US-PFIZER INC-2006114021

PATIENT
  Sex: Male
  Weight: 95.25 kg

DRUGS (5)
  1. CHANTIX [Suspect]
     Indication: SMOKING CESSATION THERAPY
     Route: 048
     Dates: start: 20060901
  2. ALL OTHER THERAPEUTIC PRODUCTS [Concomitant]
  3. ADVAIR DISKUS 100/50 [Concomitant]
  4. SYNTHROID [Concomitant]
  5. THEOPHYLLINE [Concomitant]

REACTIONS (3)
  - EMOTIONAL DISTRESS [None]
  - IRRITABILITY [None]
  - SOMNOLENCE [None]
